FAERS Safety Report 9541745 (Version 1)
Quarter: 2013Q3

REPORT INFORMATION
  Report Type: Spontaneous
  Country: DE (occurrence: DE)
  Receive Date: 20130923
  Receipt Date: 20130923
  Transmission Date: 20140515
  Serious: Yes (Other)
  Sender: FDA-Public Use
  Company Number: DE-UCBSA-098488

PATIENT
  Age: 14 Year
  Sex: Male

DRUGS (9)
  1. CIMZIA [Suspect]
     Indication: RHEUMATOID ARTHRITIS
     Dosage: TWO INJECTIONS EVERY 14 DAYS
     Dates: start: 201203, end: 2012
  2. METHOTREXAT [Suspect]
     Dosage: DOSE:25 MG
     Dates: start: 201109
  3. CORTISONE [Suspect]
     Dosage: UNKNOWN DOSE
  4. HUMIRA [Concomitant]
     Indication: RHEUMATOID ARTHRITIS
     Dates: start: 2011, end: 201203
  5. IBUPROFEN [Concomitant]
     Indication: PAIN
     Dates: end: 2012
  6. ARCOXIA [Concomitant]
     Indication: PAIN
     Dosage: 90 MG EVERY DAY
  7. KATADOLON [Concomitant]
     Indication: PAIN
     Dosage: 1 DF/TID
  8. NOVAMINSULFON [Concomitant]
     Indication: PAIN
  9. FOLIC ACID [Concomitant]

REACTIONS (12)
  - Hepatic steatosis [Unknown]
  - Blood pressure decreased [Unknown]
  - Blood creatinine increased [Unknown]
  - Overweight [Unknown]
  - Pruritus [Unknown]
  - Rash [Unknown]
  - Erythema [Unknown]
  - Nausea [Not Recovered/Not Resolved]
  - Pain in extremity [Not Recovered/Not Resolved]
  - Musculoskeletal pain [Not Recovered/Not Resolved]
  - Arthralgia [Not Recovered/Not Resolved]
  - Pain in jaw [Not Recovered/Not Resolved]
